FAERS Safety Report 8850624 (Version 1)
Quarter: 2012Q4

REPORT INFORMATION
  Report Type: 
  Country: US (occurrence: US)
  Receive Date: 20121019
  Receipt Date: 20121019
  Transmission Date: 20130627
  Serious: Yes (Other)
  Sender: FDA-Public Use
  Company Number: US-ASTRAZENECA-2012SE78348

PATIENT
  Age: 53 Year
  Sex: Female
  Weight: 117.9 kg

DRUGS (7)
  1. SEROQUEL [Suspect]
     Indication: BIPOLAR DISORDER
     Route: 048
     Dates: start: 2006, end: 20121003
  2. SEROQUEL [Suspect]
     Indication: BIPOLAR DISORDER
     Route: 048
     Dates: start: 20121003
  3. MORPHINE [Concomitant]
     Indication: BACK PAIN
  4. METHADONE [Concomitant]
     Indication: BACK PAIN
  5. METHOCARBAMOL [Concomitant]
     Indication: BACK PAIN
  6. AMBIEN [Concomitant]
  7. VALIUM [Concomitant]
     Indication: ANXIETY

REACTIONS (4)
  - Breast cancer [Unknown]
  - Feeling abnormal [Unknown]
  - Growth retardation [Unknown]
  - Neck pain [Unknown]
